FAERS Safety Report 6244774-6 (Version None)
Quarter: 2009Q2

REPORT INFORMATION
  Report Type: 
  Country: None (occurrence: None)
  Receive Date: 20090623
  Receipt Date: 20090623
  Transmission Date: 20091009
  Serious: Yes (Other)
  Sender: FDA-Public Use
  Company Number: None

PATIENT
  Age: 67 Year
  Sex: Male
  Weight: 77.1115 kg

DRUGS (1)
  1. ZICAM SPRAY, SWABS NOT KNOWN [Suspect]
     Indication: NASOPHARYNGITIS
     Dosage: AS DIRECTED AS DIRECTED
     Dates: start: 19980101, end: 20090201

REACTIONS (2)
  - AGEUSIA [None]
  - ANOSMIA [None]
